FAERS Safety Report 16672360 (Version 2)
Quarter: 2019Q3

REPORT INFORMATION
  Report Type: Spontaneous
  Country: IN (occurrence: IN)
  Receive Date: 20190806
  Receipt Date: 20190821
  Transmission Date: 20191004
  Serious: Yes (Other)
  Sender: FDA-Public Use
  Company Number: IN-ACCORD-150356

PATIENT
  Age: 5 Decade
  Sex: Male

DRUGS (2)
  1. FOLIC ACID. [Concomitant]
     Active Substance: FOLIC ACID
     Indication: PRODUCT USED FOR UNKNOWN INDICATION
  2. METHOTREXATE. [Suspect]
     Active Substance: METHOTREXATE
     Indication: PSORIASIS
     Route: 048

REACTIONS (8)
  - Incorrect dose administered [Recovering/Resolving]
  - Inappropriate schedule of product administration [Recovering/Resolving]
  - Haematuria [Unknown]
  - Skin burning sensation [Recovered/Resolved]
  - Haemorrhage [Recovering/Resolving]
  - Skin erosion [Recovering/Resolving]
  - Skin toxicity [Unknown]
  - Pancytopenia [Recovered/Resolved]
